FAERS Safety Report 23535256 (Version 2)
Quarter: 2024Q2

REPORT INFORMATION
  Report Type: Spontaneous
  Country: US (occurrence: US)
  Receive Date: 20240218
  Receipt Date: 20240424
  Transmission Date: 20240715
  Serious: No
  Sender: FDA-Public Use
  Company Number: US-SA-SAC20240209000305

PATIENT
  Age: 57 Year
  Sex: Female

DRUGS (2)
  1. DUPIXENT [Suspect]
     Active Substance: DUPILUMAB
     Indication: Dermatitis atopic
     Dosage: 600 MG, 1X
     Route: 058
     Dates: start: 20230907, end: 20230907
  2. DUPIXENT [Suspect]
     Active Substance: DUPILUMAB
     Dosage: 300 MG, QOW
     Route: 058
     Dates: start: 20230921

REACTIONS (8)
  - Eczema [Unknown]
  - Erythema [Unknown]
  - Eczema asteatotic [Unknown]
  - Pruritus [Unknown]
  - Burning sensation [Unknown]
  - Swelling face [Unknown]
  - Skin irritation [Unknown]
  - Skin burning sensation [Unknown]

NARRATIVE: CASE EVENT DATE: 20240101
